FAERS Safety Report 8936546 (Version 1)
Quarter: 2012Q4

REPORT INFORMATION
  Report Type: 
  Country: JP (occurrence: JP)
  Receive Date: 20121130
  Receipt Date: 20121130
  Transmission Date: 20130627
  Serious: Yes (Other)
  Sender: FDA-Public Use
  Company Number: JP-NAPPMUNDI-GBR-2012-0009927

PATIENT
  Age: 70 Year
  Sex: Male
  Weight: 65 kg

DRUGS (7)
  1. BUPRENORPHINE TRANSDERMAL SYSTEM [Suspect]
     Indication: PAIN
     Dosage: 5 mcg, q1h
     Route: 062
     Dates: start: 20021202, end: 20111207
  2. BUPRENORPHINE TRANSDERMAL SYSTEM [Suspect]
     Dosage: 10 mcg, q1h
     Route: 062
     Dates: start: 20111104, end: 20111202
  3. BUPRENORPHINE TRANSDERMAL SYSTEM [Suspect]
     Dosage: 5 mcg, q1h
     Route: 062
     Dates: start: 20111025, end: 20111104
  4. METHYCOBAL [Concomitant]
     Indication: PAIN
     Dosage: 1000 mcg, weekly
     Route: 042
     Dates: start: 20101129
  5. DOMPERIN                           /00498201/ [Concomitant]
     Indication: PROPHYLAXIS
     Dosage: 30 mg, daily
     Route: 048
     Dates: start: 20111025, end: 20111103
  6. KASHIWADOL                         /00584101/ [Concomitant]
     Indication: PAIN
     Dosage: UNK
     Route: 042
     Dates: start: 20101129
  7. NEUROTROPIN                        /00398601/ [Concomitant]
     Indication: PAIN
     Dosage: 6 ml, weekly
     Route: 042
     Dates: start: 20101129

REACTIONS (4)
  - Vomiting [Recovered/Resolved]
  - Vertigo [Recovered/Resolved]
  - Nausea [Recovered/Resolved]
  - Constipation [Recovered/Resolved]
